FAERS Safety Report 5763765-2 (Version None)
Quarter: 2008Q2

REPORT INFORMATION
  Report Type: 
  Country: None (occurrence: None)
  Receive Date: 20080606
  Receipt Date: 20080606
  Transmission Date: 20081010
  Serious: Yes (Life-Threatening, Hospitalization, Disabling, Other)
  Sender: FDA-Public Use
  Company Number: None

PATIENT
  Sex: Female
  Weight: 52.1637 kg

DRUGS (2)
  1. DIGOXIN [Suspect]
     Indication: BLOOD PRESSURE
     Dosage: 0.125 MG QD PO
     Route: 048
     Dates: start: 20080315, end: 20080323
  2. DIGOXIN [Suspect]
     Indication: HEART RATE
     Dosage: 0.125 MG QD PO
     Route: 048
     Dates: start: 20080315, end: 20080323

REACTIONS (5)
  - BLOOD PRESSURE DECREASED [None]
  - HEART RATE DECREASED [None]
  - HYPOVENTILATION [None]
  - NAUSEA [None]
  - SYNCOPE [None]
